FAERS Safety Report 7107531-4 (Version None)
Quarter: 2010Q4

REPORT INFORMATION
  Report Type: 
  Country: None (occurrence: None)
  Receive Date: 20101117
  Receipt Date: 20101105
  Transmission Date: 20110411
  Serious: Yes (Other)
  Sender: FDA-Public Use
  Company Number: TR-ELI_LILLY_AND_COMPANY-TR201011002240

PATIENT
  Sex: Female

DRUGS (3)
  1. HUMULIN R [Suspect]
     Indication: GESTATIONAL DIABETES
     Dosage: 4 U, 3/D
     Route: 058
     Dates: start: 20100101, end: 20101025
  2. HUMULIN N [Suspect]
     Indication: GESTATIONAL DIABETES
     Dosage: 4 U, DAILY (1/D)
     Route: 058
     Dates: start: 20100101, end: 20101025
  3. ELEVIT [Concomitant]
     Dosage: UNK UNK, DAILY (1/D)
     Route: 048
     Dates: start: 20100101, end: 20101025

REACTIONS (2)
  - ABORTION SPONTANEOUS [None]
  - DRUG EXPOSURE DURING PREGNANCY [None]
